FAERS Safety Report 17602129 (Version 2)
Quarter: 2020Q3

REPORT INFORMATION
  Report Type: Report from Study
  Country: None (occurrence: US)
  Receive Date: 20200330
  Receipt Date: 20200811
  Transmission Date: 20201102
  Serious: Yes (Other)
  Sender: FDA-Public Use
  Company Number: US-ABBVIE-20K-163-3321917-00

PATIENT
  Age: 72 Year
  Sex: Female
  Weight: 61.74 kg

DRUGS (4)
  1. CLONIDINE. [Concomitant]
     Active Substance: CLONIDINE
     Indication: BLOOD PRESSURE ABNORMAL
  2. RINVOQ [Suspect]
     Active Substance: UPADACITINIB
     Indication: RHEUMATOID ARTHRITIS
     Route: 048
     Dates: start: 201910, end: 202002
  3. ALEVE [Concomitant]
     Active Substance: NAPROXEN SODIUM
     Indication: PAIN
  4. MULTIVITAMIN [Concomitant]
     Active Substance: VITAMINS
     Indication: BLOOD IRON ABNORMAL

REACTIONS (11)
  - Loss of consciousness [Recovered/Resolved]
  - Fall [Recovered/Resolved]
  - Eye contusion [Unknown]
  - Dysuria [Recovered/Resolved]
  - Dizziness [Recovered/Resolved]
  - Cystitis [Recovered/Resolved]
  - Fall [Recovered/Resolved]
  - Blood urine present [Recovered/Resolved]
  - Wound haemorrhage [Recovered/Resolved]
  - Skin laceration [Recovered/Resolved]
  - Dizziness [Recovered/Resolved]

NARRATIVE: CASE EVENT DATE: 20191203
